FAERS Safety Report 9146126 (Version 1)
Quarter: 2013Q1

REPORT INFORMATION
  Report Type: Spontaneous
  Country: QA (occurrence: QA)
  Receive Date: 20130307
  Receipt Date: 20130307
  Transmission Date: 20140127
  Serious: Yes (Other)
  Sender: FDA-Public Use
  Company Number: QA-MYLANLABS-2013S1004295

PATIENT
  Age: 51 Year
  Sex: Female
  Weight: 55 kg

DRUGS (14)
  1. ETOPOSIDE [Suspect]
     Indication: HODGKIN^S DISEASE
     Dosage: 40 MG/M2/DAY ON DAYS 1-4
     Route: 042
     Dates: start: 20120423
  2. METHYLPREDNISOLONE [Suspect]
     Indication: HODGKIN^S DISEASE
     Dosage: 500 MG/DAY ON DAYS 1-4
     Route: 042
     Dates: start: 20120423
  3. CYTARABINE [Suspect]
     Indication: HODGKIN^S DISEASE
     Dosage: 2000 MG/M2 ON DAY 5
     Route: 042
     Dates: start: 20120423
  4. CISPLATIN [Suspect]
     Indication: HODGKIN^S DISEASE
     Dosage: 25 MG/M2/DAY AS A CONTINUOUS INFUSION ON DAYS 1-4
     Route: 041
     Dates: start: 20120423
  5. SPIRONOLACTONE [Suspect]
     Route: 065
  6. FUROSEMIDE [Suspect]
     Route: 065
  7. FILGRASTIM [Suspect]
     Indication: LEUKOPENIA
     Route: 058
  8. FILGRASTIM [Suspect]
     Indication: NEUTROPENIA
     Route: 058
  9. ENTECAVIR [Concomitant]
     Route: 065
  10. PROPRANOLOL [Concomitant]
     Route: 065
  11. ALLOPURINOL [Concomitant]
     Route: 065
  12. LACTULOSE [Concomitant]
     Route: 065
  13. VANCOMYCIN [Concomitant]
     Route: 042
  14. PIPERACILLIN W/TAZOBACTAM          /01606301/ [Concomitant]
     Route: 042

REACTIONS (3)
  - Hypophosphataemia [Recovered/Resolved]
  - Leukopenia [Recovered/Resolved]
  - Neutropenia [Recovered/Resolved]
